FAERS Safety Report 23884040 (Version 4)
Quarter: 2024Q3

REPORT INFORMATION
  Report Type: Spontaneous
  Country: IL (occurrence: IL)
  Receive Date: 20240522
  Receipt Date: 20240704
  Transmission Date: 20241016
  Serious: Yes (Other)
  Sender: NOVARTIS
  Company Number: IL-002147023-NVSC2024IL104913

PATIENT
  Age: 16 Year
  Sex: Male

DRUGS (12)
  1. ILARIS [Suspect]
     Active Substance: CANAKINUMAB
     Indication: Fibrodysplasia ossificans progressiva
     Route: 065
  2. ILARIS [Suspect]
     Active Substance: CANAKINUMAB
     Dosage: UNK
     Route: 058
     Dates: start: 20180605
  3. ILARIS [Suspect]
     Active Substance: CANAKINUMAB
     Dosage: 200-250MG, 2/MONTH
     Route: 058
     Dates: start: 202008, end: 202206
  4. ILARIS [Suspect]
     Active Substance: CANAKINUMAB
     Dosage: 175-180MG, 2/MONTH
     Route: 058
     Dates: start: 20221107
  5. ILARIS [Suspect]
     Active Substance: CANAKINUMAB
     Dosage: 150MG, 2/MONTH
     Route: 058
     Dates: start: 20221213
  6. ILARIS [Suspect]
     Active Substance: CANAKINUMAB
     Dosage: 300MG, 1/MONTH
     Route: 058
     Dates: start: 20231023
  7. ILARIS [Suspect]
     Active Substance: CANAKINUMAB
     Dosage: 300 MG (AROUND 74)
     Route: 065
  8. PAMIDRONATE [Concomitant]
     Active Substance: PAMIDRONATE DISODIUM
     Indication: Fibrodysplasia ossificans progressiva
     Dosage: UNK
     Route: 042
  9. METHYLPREDNISOLONE [Concomitant]
     Active Substance: METHYLPREDNISOLONE
     Indication: Fibrodysplasia ossificans progressiva
     Dosage: 30 MG/KG
     Route: 065
  10. METHYLPREDNISOLONE [Concomitant]
     Active Substance: METHYLPREDNISOLONE
     Dosage: 1000 MG, QD,  DURING A  FLARE (UP TO 3-4 TIMES PER YEAR)
     Route: 042
  11. CELECOXIB [Concomitant]
     Active Substance: CELECOXIB
     Indication: Product used for unknown indication
     Dosage: 200MG, 2/DAY ON A DAILY BASIS
     Route: 065
  12. MONTELUKAST [Concomitant]
     Active Substance: MONTELUKAST SODIUM
     Indication: Product used for unknown indication
     Dosage: 10MG, 1/DAY ON A DAILY BASIS
     Route: 065

REACTIONS (2)
  - Thrombocytopenia [Recovered/Resolved]
  - Product use in unapproved indication [Unknown]

NARRATIVE: CASE EVENT DATE: 20190326
